FAERS Safety Report 17740258 (Version 1)
Quarter: 2020Q2

REPORT INFORMATION
  Report Type: Spontaneous
  Country: US (occurrence: US)
  Receive Date: 20200504
  Receipt Date: 20200504
  Transmission Date: 20200714
  Serious: No
  Sender: FDA-Public Use
  Company Number: US-PFIZER INC-2020155262

PATIENT
  Age: 69 Year
  Sex: Female

DRUGS (1)
  1. PREMARIN [Suspect]
     Active Substance: ESTROGENS, CONJUGATED
     Dosage: UNK, [0.625MG/G 30 GRAM]
     Route: 067

REACTIONS (5)
  - Oral discomfort [Unknown]
  - Hypoaesthesia [Unknown]
  - Abdominal pain [Unknown]
  - Throat irritation [Unknown]
  - Tongue discomfort [Unknown]
